FAERS Safety Report 9768289 (Version 2)
Quarter: 2013Q4

REPORT INFORMATION
  Report Type: Report from Study
  Country: US (occurrence: US)
  Receive Date: 20131217
  Receipt Date: 20131223
  Transmission Date: 20140711
  Serious: Yes (Other)
  Sender: FDA-Public Use
  Company Number: US-PURDUE-USA-2013-0109479

PATIENT
  Sex: Male

DRUGS (1)
  1. OXY CR TAB [Suspect]
     Indication: TEMPOROMANDIBULAR JOINT SYNDROME
     Dosage: 240 MG, BID
     Route: 048

REACTIONS (12)
  - Rib fracture [Unknown]
  - Cartilage injury [Unknown]
  - Pelvic fracture [Unknown]
  - Fractured sacrum [Unknown]
  - Increased upper airway secretion [Unknown]
  - Fall [Unknown]
  - Drug hypersensitivity [Unknown]
  - Somnolence [Unknown]
  - Insomnia [Unknown]
  - Drug effect decreased [Unknown]
  - Vomiting [Unknown]
  - Product coating issue [Unknown]
